FAERS Safety Report 9405305 (Version 1)
Quarter: 2013Q3

REPORT INFORMATION
  Report Type: Spontaneous
  Country: US (occurrence: US)
  Receive Date: 20130717
  Receipt Date: 20130717
  Transmission Date: 20140515
  Serious: Yes (Other)
  Sender: FDA-Public Use
  Company Number: GXBR2013US001357

PATIENT
  Age: 60 Year
  Sex: Male

DRUGS (1)
  1. AZITHROMYCIN 250 MG [Suspect]
     Dosage: 250 MG, UNK

REACTIONS (6)
  - Myocardial infarction [Unknown]
  - Thrombosis [Unknown]
  - Dizziness [Unknown]
  - Abdominal pain [Unknown]
  - Anxiety [Unknown]
  - Panic attack [Unknown]
